FAERS Safety Report 4494892-8 (Version None)
Quarter: 2004Q4

REPORT INFORMATION
  Report Type: 
  Country: None (occurrence: None)
  Receive Date: 20041103
  Receipt Date: 20041019
  Transmission Date: 20050328
  Serious: Yes (Hospitalization, Other)
  Sender: FDA-Public Use
  Company Number: 202909

PATIENT
  Age: 70 Year
  Sex: Female
  Weight: 79.3795 kg

DRUGS (21)
  1. AVONEX [Suspect]
     Indication: MULTIPLE SCLEROSIS
     Dosage: 30 MCG QW IM
     Route: 030
     Dates: start: 20020601
  2. AVONEX [Suspect]
     Indication: MULTIPLE SCLEROSIS
     Dosage: 30 MCG QW IM
     Route: 030
  3. POTASSIUM CHLORIDE [Concomitant]
  4. ZOLOFT [Concomitant]
  5. NEURONTIN [Concomitant]
  6. VICODIN [Concomitant]
  7. DETROL-SLOW RELEASE [Concomitant]
  8. CLARINEX [Concomitant]
  9. PHENOBARBITAL TAB [Concomitant]
  10. FLUDROCORTISONE ACETATE TAB [Concomitant]
  11. FLONASE [Concomitant]
  12. BACLOFEN [Concomitant]
  13. MIACALCIN [Concomitant]
  14. PRAVACHOL [Concomitant]
  15. MULTIVITAMIN [Concomitant]
  16. CALTRATE [Concomitant]
  17. GENTEEL EYE DROPS [Concomitant]
  18. MAGNESIUM SULFATE [Concomitant]
  19. VITAMIN E [Concomitant]
  20. FLAX OIL [Concomitant]
  21. SEPTRA DS [Concomitant]

REACTIONS (8)
  - DRY EYE [None]
  - DYSPHONIA [None]
  - FALL [None]
  - FEMUR FRACTURE [None]
  - MULTIPLE SCLEROSIS [None]
  - RETINAL DETACHMENT [None]
  - URINARY INCONTINENCE [None]
  - VISUAL DISTURBANCE [None]
